FAERS Safety Report 17766460 (Version 1)
Quarter: 2020Q2

REPORT INFORMATION
  Report Type: Spontaneous
  Country: US (occurrence: US)
  Receive Date: 20200511
  Receipt Date: 20200511
  Transmission Date: 20200714
  Serious: Yes (Other)
  Sender: FDA-Public Use
  Company Number: None

PATIENT
  Age: 44 Year
  Sex: Male

DRUGS (1)
  1. VIVITROL [Suspect]
     Active Substance: NALTREXONE

REACTIONS (7)
  - Irritability [None]
  - Suicidal ideation [None]
  - Dependence [None]
  - Decreased appetite [None]
  - Withdrawal syndrome [None]
  - Gastric disorder [None]
  - Therapeutic product effect incomplete [None]

NARRATIVE: CASE EVENT DATE: 20200511
